FAERS Safety Report 20169002 (Version 4)
Quarter: 2022Q2

REPORT INFORMATION
  Report Type: Spontaneous
  Country: US (occurrence: US)
  Receive Date: 20211210
  Receipt Date: 20220504
  Transmission Date: 20220721
  Serious: No
  Sender: FDA-Public Use
  Company Number: US-PFIZER INC-202101567193

PATIENT
  Age: 13 Year
  Sex: Female

DRUGS (2)
  1. GENOTROPIN [Suspect]
     Active Substance: SOMATROPIN
     Dosage: 1.4 MG
     Dates: start: 20211108
  2. GENOTROPIN [Suspect]
     Active Substance: SOMATROPIN
     Dosage: 1.6 MG
     Dates: start: 202111

REACTIONS (9)
  - Injection site erythema [Unknown]
  - Injection site bruising [Unknown]
  - Injection site mass [Unknown]
  - Injection site extravasation [Unknown]
  - Incorrect dose administered [Unknown]
  - Extra dose administered [Unknown]
  - Device leakage [Unknown]
  - Device breakage [Unknown]
  - Drug dose omission by device [Not Recovered/Not Resolved]
